FAERS Safety Report 5931012-4 (Version None)
Quarter: 2008Q4

REPORT INFORMATION
  Report Type: 
  Country: None (occurrence: None)
  Receive Date: 20081027
  Receipt Date: 20081022
  Transmission Date: 20090506
  Serious: Yes (Other)
  Sender: FDA-Public Use
  Company Number: JP-BAYER-200812549BYL

PATIENT
  Age: 78 Year
  Sex: Female

DRUGS (7)
  1. ASPIRIN [Suspect]
     Indication: ARTERIAL OCCLUSIVE DISEASE
     Dosage: TOTAL DAILY DOSE: 100 MG  UNIT DOSE: 100 MG
     Route: 048
     Dates: start: 20080702
  2. PROSNER [Suspect]
     Indication: ARTERIAL OCCLUSIVE DISEASE
     Dosage: UNIT DOSE: 20 ?G
     Route: 048
     Dates: start: 20020204, end: 20081021
  3. LOCHOL [Suspect]
     Indication: HYPERLIPIDAEMIA
     Route: 048
     Dates: start: 20020204
  4. ACTONEL [Suspect]
     Indication: OSTEOPOROSIS
     Dosage: TOTAL DAILY DOSE: 17.5 MG  UNIT DOSE: 17.5 MG
     Route: 048
     Dates: start: 20061110
  5. LIPIDIL [Suspect]
     Indication: HYPERLIPIDAEMIA
     Dosage: TOTAL DAILY DOSE: 100 MG  UNIT DOSE: 100 MG
     Route: 048
     Dates: start: 20050401
  6. LUVOX [Suspect]
     Indication: DEPRESSION
     Dosage: TOTAL DAILY DOSE: 25 MG  UNIT DOSE: 25 MG
     Route: 048
     Dates: start: 20060113
  7. BUP-4 [Suspect]
     Indication: POLLAKIURIA
     Dosage: TOTAL DAILY DOSE: 10 MG  UNIT DOSE: 10 MG
     Route: 048
     Dates: start: 20070127

REACTIONS (1)
  - INTERSTITIAL LUNG DISEASE [None]
